FAERS Safety Report 5448269-9 (Version None)
Quarter: 2007Q3

REPORT INFORMATION
  Report Type: 
  Country: None (occurrence: None)
  Receive Date: 20070911
  Receipt Date: 20070906
  Transmission Date: 20080115
  Serious: Yes (Life-Threatening, Hospitalization)
  Sender: FDA-Public Use
  Company Number: PHEH2007US11938

PATIENT

DRUGS (1)
  1. TEKTURNA [Suspect]
     Dosage: 150 MG, QD
     Route: 048

REACTIONS (2)
  - LABILE HYPERTENSION [None]
  - VOMITING [None]
